FAERS Safety Report 9197098 (Version 3)
Quarter: 2013Q2

REPORT INFORMATION
  Report Type: Spontaneous
  Country: US (occurrence: US)
  Receive Date: 20130328
  Receipt Date: 20130506
  Transmission Date: 20140414
  Serious: Yes (Hospitalization)
  Sender: FDA-Public Use
  Company Number: US-JNJFOC-20130312121

PATIENT
  Age: 88 Year
  Sex: Male
  Weight: 54.43 kg

DRUGS (13)
  1. XARELTO [Suspect]
     Indication: CEREBROVASCULAR ACCIDENT PROPHYLAXIS
     Route: 048
  2. XARELTO [Suspect]
     Indication: ATRIAL FIBRILLATION
     Route: 048
  3. PREDNISONE [Concomitant]
     Route: 048
  4. LUPRON [Concomitant]
     Route: 065
  5. XGEVA [Concomitant]
     Route: 065
  6. ZYTIGA [Concomitant]
     Route: 048
  7. AMLODIPINE [Concomitant]
     Route: 048
  8. ALLEGRA [Concomitant]
     Route: 048
  9. HYDROCODONE [Concomitant]
     Dosage: AS NECESSARY
     Route: 065
  10. LOSARTAN [Concomitant]
     Route: 048
  11. MEGACE [Concomitant]
     Route: 048
  12. PROMETHAZINE [Concomitant]
     Route: 048
  13. RANITIDINE [Concomitant]
     Route: 048

REACTIONS (2)
  - Epistaxis [Recovered/Resolved]
  - Red blood cell count decreased [Unknown]
